FAERS Safety Report 18543510 (Version 3)
Quarter: 2021Q1

REPORT INFORMATION
  Report Type: Report from Study
  Country: DE (occurrence: DE)
  Receive Date: 20201124
  Receipt Date: 20210315
  Transmission Date: 20210419
  Serious: Yes (Other)
  Sender: FDA-Public Use
  Company Number: DE-TAKEDA-DE202011850

PATIENT
  Age: 14 Year
  Sex: Male
  Weight: 49 kg

DRUGS (7)
  1. AGALSIDASE ALFA [Suspect]
     Active Substance: AGALSIDASE ALFA
     Indication: MUCOPOLYSACCHARIDOSIS II
     Dosage: 24 MILLIGRAM, Q2WEEKS
     Route: 042
     Dates: start: 2010, end: 20210127
  2. AGALSIDASE ALFA [Suspect]
     Active Substance: AGALSIDASE ALFA
     Dosage: 30 MILLIGRAM, Q2WEEKS
     Route: 042
     Dates: start: 20200126
  3. AGALSIDASE ALFA [Suspect]
     Active Substance: AGALSIDASE ALFA
     Dosage: 30 MILLIGRAM
     Route: 042
     Dates: start: 20200825, end: 20200825
  4. AGALSIDASE ALFA [Suspect]
     Active Substance: AGALSIDASE ALFA
     Dosage: 24 MILLIGRAM, Q2WEEKS
     Route: 042
     Dates: start: 2010, end: 2020
  5. AGALSIDASE ALFA [Suspect]
     Active Substance: AGALSIDASE ALFA
     Dosage: 24 MILLIGRAM, Q2WEEKS
     Route: 042
     Dates: start: 20200310
  6. AGALSIDASE ALFA [Suspect]
     Active Substance: AGALSIDASE ALFA
     Dosage: 30 MILLIGRAM, Q2WEEKS
     Route: 042
     Dates: start: 20200126
  7. AGALSIDASE ALFA [Suspect]
     Active Substance: AGALSIDASE ALFA
     Dosage: 30 MILLIGRAM, SINGLE
     Route: 042
     Dates: start: 20201112, end: 20201112

REACTIONS (8)
  - COVID-19 [Recovered/Resolved]
  - Oropharyngeal pain [Recovered/Resolved]
  - Rhinitis [Recovered/Resolved]
  - Headache [Recovering/Resolving]
  - Arrhythmia [Recovering/Resolving]
  - Ear pain [Recovered/Resolved]
  - Nausea [Recovered/Resolved]
  - Product dose omission issue [Unknown]

NARRATIVE: CASE EVENT DATE: 20200317
